FAERS Safety Report 4488364-4 (Version None)
Quarter: 2004Q4

REPORT INFORMATION
  Report Type: 
  Country: None (occurrence: None)
  Receive Date: 20041026
  Receipt Date: 20041014
  Transmission Date: 20050328
  Serious: Yes (Other)
  Sender: FDA-Public Use
  Company Number: 200414640BCC

PATIENT
  Age: 54 Year
  Sex: Female
  Weight: 43.9989 kg

DRUGS (6)
  1. RID MOUSSE [Suspect]
     Indication: LICE INFESTATION
     Dosage: ONCE, TOPICAL
     Route: 061
     Dates: start: 20040913
  2. GLEEVEC [Concomitant]
  3. BALANCED CALCIUM [Concomitant]
  4. IRON [Concomitant]
  5. ACTONEL [Concomitant]
  6. MIACALCIN [Concomitant]

REACTIONS (3)
  - LICE INFESTATION [None]
  - UNEVALUABLE EVENT [None]
  - WHITE BLOOD CELL COUNT DECREASED [None]
